FAERS Safety Report 17767176 (Version 3)
Quarter: 2020Q2

REPORT INFORMATION
  Report Type: Report from Study
  Country: IN (occurrence: IN)
  Receive Date: 20200511
  Receipt Date: 20200528
  Transmission Date: 20200714
  Serious: Yes (Hospitalization, Other)
  Sender: FDA-Public Use
  Company Number: NVSC2020IN021601

PATIENT
  Age: 63 Year
  Sex: Female
  Weight: 50 kg

DRUGS (4)
  1. INSULIN [Concomitant]
     Active Substance: INSULIN NOS
     Indication: PRODUCT USED FOR UNKNOWN INDICATION
     Route: 065
  2. GALVUS MET [Suspect]
     Active Substance: METFORMIN HYDROCHLORIDE\VILDAGLIPTIN
     Indication: DIABETES MELLITUS
     Dosage: 1 DF, BID (50/500 OT)
     Route: 048
     Dates: start: 201910
  3. GALVUS MET [Suspect]
     Active Substance: METFORMIN HYDROCHLORIDE\VILDAGLIPTIN
     Dosage: UNK
     Route: 048
     Dates: start: 201912
  4. DIAMICRON MEX [Concomitant]
     Indication: DIABETES MELLITUS
     Dosage: UNK
     Route: 048

REACTIONS (5)
  - Blood glucose increased [Not Recovered/Not Resolved]
  - Gastric disorder [Unknown]
  - Hyperglycaemia [Not Recovered/Not Resolved]
  - Abdominal pain upper [Unknown]
  - Dyspepsia [Unknown]

NARRATIVE: CASE EVENT DATE: 201911
